FAERS Safety Report 9808999 (Version 2)
Quarter: 2014Q1

REPORT INFORMATION
  Report Type: Spontaneous
  Country: US (occurrence: US)
  Receive Date: 20140110
  Receipt Date: 20140217
  Transmission Date: 20141002
  Serious: Yes (Hospitalization)
  Sender: FDA-Public Use
  Company Number: US-GLAXOSMITHKLINE-A1055773A

PATIENT
  Age: 81 Year
  Sex: Female

DRUGS (6)
  1. ADVAIR [Suspect]
     Indication: ASTHMA
     Dosage: 1PUFF TWICE PER DAY
     Route: 055
  2. VENTOLIN HFA [Concomitant]
  3. BENICAR [Concomitant]
  4. FUROSEMIDE [Concomitant]
  5. CLONIDINE [Concomitant]
  6. AMLODIPINE [Concomitant]

REACTIONS (3)
  - Upper limb fracture [Unknown]
  - Fall [Unknown]
  - Product quality issue [Unknown]
